FAERS Safety Report 13338951 (Version 1)
Quarter: 2017Q1

REPORT INFORMATION
  Report Type: Spontaneous
  Country: KR (occurrence: KR)
  Receive Date: 20170315
  Receipt Date: 20170315
  Transmission Date: 20170428
  Serious: Yes (Hospitalization, Other)
  Sender: FDA-Public Use
  Company Number: KR-009507513-1703KOR005653

PATIENT
  Age: 53 Year
  Sex: Male
  Weight: 72.6 kg

DRUGS (129)
  1. EMEND (FOSAPREPITANT DIMEGLUMINE) [Suspect]
     Active Substance: FOSAPREPITANT DIMEGLUMINE
     Dosage: 150 MG, ONCE
     Route: 042
     Dates: start: 20160727, end: 20160727
  2. CISPLATIN. [Concomitant]
     Active Substance: CISPLATIN
     Dosage: 93.5 MG, ONCE, CYCLE 3
     Route: 042
     Dates: start: 20160611, end: 20160611
  3. ALOXI [Concomitant]
     Active Substance: PALONOSETRON HYDROCHLORIDE
     Indication: PREMEDICATION
     Dosage: 0.25 ML, ONCE
     Route: 042
     Dates: start: 20160429, end: 20160429
  4. FENTORA [Concomitant]
     Active Substance: FENTANYL CITRATE
     Indication: PAIN
     Dosage: 1 TABLET (100 MICROGRAM), QID, FORMULATION: BUCCAL TABLET
     Route: 048
     Dates: start: 20160530, end: 20160802
  5. LASIX [Concomitant]
     Active Substance: FUROSEMIDE
     Indication: PROPHYLAXIS
     Dosage: 20 MG, BID
     Route: 048
     Dates: start: 20160530
  6. CEFOTAXIME SODIUM [Concomitant]
     Active Substance: CEFOTAXIME SODIUM
     Indication: PROPHYLAXIS
     Dosage: 2 G, TID
     Route: 030
     Dates: start: 201604, end: 20160424
  7. LASIX [Concomitant]
     Active Substance: FUROSEMIDE
     Dosage: 0.5 AMP, BID
     Route: 042
     Dates: start: 20160501, end: 20160504
  8. PHOSTEN [Concomitant]
     Dosage: 1 AMP (20 ML), ONCE
     Route: 042
     Dates: start: 20160811, end: 20160811
  9. DENOGAN [Concomitant]
     Active Substance: PROPACETAMOL HYDROCHLORIDE
     Indication: PAIN
     Dosage: 1 V, QD
     Route: 042
     Dates: start: 20160426, end: 20160502
  10. PETHIDINE HCL JEIL [Concomitant]
     Indication: PAIN
     Dosage: 1 AMP, ONCE
     Route: 042
     Dates: start: 20160422, end: 20160422
  11. ACTINAMIDE [Concomitant]
     Dosage: 1 MG, QD
     Route: 030
     Dates: start: 20150711, end: 20160711
  12. PANTOLINE TABLETS [Concomitant]
     Dosage: 1 TABLET (20 MG), ONCE
     Route: 048
     Dates: start: 20160703, end: 20160703
  13. CISPLATIN. [Concomitant]
     Active Substance: CISPLATIN
     Dosage: 98.5 MG, ONCE, CYCLE 1
     Route: 042
     Dates: start: 20160728, end: 20160728
  14. CISPLATIN. [Concomitant]
     Active Substance: CISPLATIN
     Dosage: 98.5 MG, ONCE, CYCLE 2
     Route: 042
     Dates: start: 20160822, end: 20160822
  15. DEXA (DEXAMETHASONE SODIUM PHOSPHATE) [Concomitant]
     Dosage: 8 MG, ONCE
     Route: 042
     Dates: start: 20160729, end: 20160729
  16. DEXAMETHASONE. [Concomitant]
     Active Substance: DEXAMETHASONE
     Indication: PROPHYLAXIS
     Dosage: 4 MG, BID
     Route: 048
     Dates: start: 20160523, end: 20160524
  17. DEXAMETHASONE. [Concomitant]
     Active Substance: DEXAMETHASONE
     Dosage: 4 MG, BID
     Route: 048
     Dates: start: 20160612, end: 20160613
  18. PLAVIX [Concomitant]
     Active Substance: CLOPIDOGREL BISULFATE
     Indication: PROPHYLAXIS
     Dosage: 1 TABLET, QD
     Route: 048
     Dates: start: 20160820
  19. CODEINE PHOSPHATE [Concomitant]
     Active Substance: CODEINE PHOSPHATE
     Indication: PAIN
     Dosage: 1 TABLET (20 MG), TID
     Route: 048
     Dates: start: 20160419, end: 20160419
  20. MUCOMYST [Concomitant]
     Active Substance: ACETYLCYSTEINE
     Indication: PRODUCTIVE COUGH
     Dosage: 4 B, ONCE
     Route: 055
     Dates: start: 20160428, end: 20160428
  21. MUCOMYST [Concomitant]
     Active Substance: ACETYLCYSTEINE
     Dosage: 2 B, ONCE
     Route: 055
     Dates: start: 20160824, end: 20160824
  22. LASIX [Concomitant]
     Active Substance: FUROSEMIDE
     Dosage: 20 MG, TID
     Route: 042
     Dates: start: 20160805, end: 20160829
  23. PANTOLINE TABLETS [Concomitant]
     Indication: PROPHYLAXIS
     Dosage: 1 TABLET (20 MG), QD
     Route: 048
     Dates: start: 20160522, end: 20160531
  24. SMECTA [Concomitant]
     Active Substance: MONTMORILLONITE
     Indication: PROPHYLAXIS
     Dosage: 1 PK, TID
     Route: 048
     Dates: start: 20160803, end: 20160806
  25. EMEND (FOSAPREPITANT DIMEGLUMINE) [Suspect]
     Active Substance: FOSAPREPITANT DIMEGLUMINE
     Dosage: 150 MG, ONCE
     Route: 042
     Dates: start: 20160522, end: 20160522
  26. EMEND (FOSAPREPITANT DIMEGLUMINE) [Suspect]
     Active Substance: FOSAPREPITANT DIMEGLUMINE
     Dosage: 150 MG, ONCE
     Route: 042
     Dates: start: 20160611, end: 20160611
  27. ALIMTA [Concomitant]
     Active Substance: PEMETREXED DISODIUM
     Dosage: 935 MG, ONCE, CYCLE 3
     Route: 042
     Dates: start: 20160610, end: 20160610
  28. CISPLATIN. [Concomitant]
     Active Substance: CISPLATIN
     Dosage: 93.5 MG, ONCE, CYCLE 2
     Route: 042
     Dates: start: 20160522, end: 20160522
  29. DEXA (DEXAMETHASONE SODIUM PHOSPHATE) [Concomitant]
     Dosage: 8 MG, ONCE
     Route: 042
     Dates: start: 20160703, end: 20160703
  30. DEXAMETHASONE. [Concomitant]
     Active Substance: DEXAMETHASONE
     Indication: PREMEDICATION
     Dosage: 8 MG, ONCE
     Route: 048
     Dates: start: 20160726, end: 20160726
  31. ALOXI [Concomitant]
     Active Substance: PALONOSETRON HYDROCHLORIDE
     Dosage: 0.25 ML, ONCE
     Route: 042
     Dates: start: 20160727, end: 20160727
  32. ALOXI [Concomitant]
     Active Substance: PALONOSETRON HYDROCHLORIDE
     Dosage: 0.25 ML, ONCE
     Route: 042
     Dates: start: 20160822, end: 20160822
  33. CODAEWON FORTE [Concomitant]
     Indication: COUGH
     Dosage: 1 PK, TID
     Route: 048
     Dates: start: 20160427, end: 20160605
  34. CODAEWON FORTE [Concomitant]
     Indication: PRODUCTIVE COUGH
     Dosage: 1 PK, TID
     Route: 048
     Dates: start: 20160730, end: 20160730
  35. MANNITOL. [Concomitant]
     Active Substance: MANNITOL
     Dosage: 70 ML, ONCE
     Route: 042
     Dates: start: 20160522, end: 20160522
  36. LASIX [Concomitant]
     Active Substance: FUROSEMIDE
     Dosage: 0.5 AMP, QID
     Route: 042
     Dates: start: 20160611, end: 20160611
  37. HEPARIN SODIUM. [Concomitant]
     Active Substance: HEPARIN SODIUM
     Indication: THROMBOSIS PROPHYLAXIS
     Dosage: 1 ML, BID
     Route: 058
     Dates: start: 20160415, end: 20160506
  38. SCD MAGNESIUM OXIDE [Concomitant]
     Indication: PROPHYLAXIS
     Dosage: 2 TABLETS (250 MG), TID
     Route: 048
     Dates: start: 20160430, end: 20160430
  39. VIMOVO [Concomitant]
     Active Substance: ESOMEPRAZOLE MAGNESIUM\NAPROXEN
     Indication: PAIN
     Dosage: 1 TABLET (500/20 MG), QD
     Route: 048
     Dates: start: 20160724
  40. TERACYCLIN [Concomitant]
     Indication: PROPHYLAXIS
     Dosage: 1 CAPSULE (250 MG), QID
     Route: 048
     Dates: start: 20160503, end: 20160503
  41. DOCETAXEL. [Concomitant]
     Active Substance: DOCETAXEL
     Indication: LUNG NEOPLASM MALIGNANT
     Dosage: 118.2 MG, ONCE, CYCLE 1
     Route: 042
     Dates: start: 20160727, end: 20160727
  42. DEXAMETHASONE. [Concomitant]
     Active Substance: DEXAMETHASONE
     Dosage: 4 MG, BID
     Route: 048
     Dates: start: 20150704, end: 20160705
  43. DEXAMETHASONE. [Concomitant]
     Active Substance: DEXAMETHASONE
     Dosage: 4 MG, BID
     Route: 048
     Dates: start: 20160823, end: 20160825
  44. ALOXI [Concomitant]
     Active Substance: PALONOSETRON HYDROCHLORIDE
     Dosage: 0.25 ML, ONCE
     Route: 042
     Dates: start: 20160611, end: 20160611
  45. STILLEN (CHINESE MUGWORT) [Concomitant]
     Indication: PROPHYLAXIS
     Dosage: 1 TABLET (60 MG), TID
     Route: 048
     Dates: start: 20160620
  46. HEPARIN SODIUM. [Concomitant]
     Active Substance: HEPARIN SODIUM
     Dosage: 1 ML, ONCE
     Route: 042
     Dates: start: 20160826, end: 20160826
  47. METRONIDAZOLE. [Concomitant]
     Active Substance: METRONIDAZOLE
     Indication: PROPHYLAXIS
     Dosage: 100 ML (1 BTL), TID
     Route: 042
     Dates: start: 201604, end: 20160421
  48. PETHIDINE HCL JEIL [Concomitant]
     Dosage: 1 AMP, ONCE
     Route: 042
     Dates: start: 20160503, end: 20160503
  49. ATROVENT [Concomitant]
     Active Substance: IPRATROPIUM BROMIDE
     Indication: PRODUCTIVE COUGH
     Dosage: 2 AMP, QD
     Route: 055
     Dates: start: 20160725, end: 20160802
  50. ISOPTIN [Concomitant]
     Active Substance: VERAPAMIL HYDROCHLORIDE
     Indication: PROPHYLAXIS
     Dosage: 5 MG, ONCE
     Route: 042
     Dates: start: 20160819, end: 20160819
  51. TARGIN [Concomitant]
     Active Substance: NALOXONE HYDROCHLORIDE\OXYCODONE HYDROCHLORIDE
     Indication: PAIN
     Dosage: 1 TABLET (10/5 MG), BID
     Route: 048
     Dates: start: 20160428
  52. PROMAC (POLAPREZINC) [Concomitant]
     Active Substance: POLAPREZINC
     Indication: ULCER
     Dosage: 1 TABLET, BID
     Route: 048
     Dates: start: 20150511, end: 20160521
  53. EMEND (FOSAPREPITANT DIMEGLUMINE) [Suspect]
     Active Substance: FOSAPREPITANT DIMEGLUMINE
     Indication: PROPHYLAXIS OF NAUSEA AND VOMITING
     Dosage: 150 MG, ONCE
     Route: 042
     Dates: start: 20160429, end: 20160429
  54. EMEND (FOSAPREPITANT DIMEGLUMINE) [Suspect]
     Active Substance: FOSAPREPITANT DIMEGLUMINE
     Dosage: 150 MG, ONCE
     Route: 042
     Dates: start: 20160822, end: 20160822
  55. ALIMTA [Concomitant]
     Active Substance: PEMETREXED DISODIUM
     Dosage: 935 MG, ONCE, CYCLE 2
     Route: 042
     Dates: start: 20160521, end: 20160521
  56. DEXA (DEXAMETHASONE SODIUM PHOSPHATE) [Concomitant]
     Dosage: 4 MG, BID
     Route: 042
     Dates: start: 20160612, end: 20160612
  57. DEXAMETHASONE. [Concomitant]
     Active Substance: DEXAMETHASONE
     Dosage: 4 MG, TID
     Route: 048
     Dates: start: 20160728, end: 20160728
  58. FOLIC ACID. [Concomitant]
     Active Substance: FOLIC ACID
     Indication: PROPHYLAXIS
     Dosage: 1 TABLET (1 MG), BID
     Route: 048
     Dates: start: 20160511
  59. FLIXOTIDE [Concomitant]
     Active Substance: FLUTICASONE PROPIONATE
     Indication: PRODUCTIVE COUGH
     Dosage: 4 ML, QD
     Route: 055
     Dates: start: 20160725, end: 20160726
  60. MANNITOL. [Concomitant]
     Active Substance: MANNITOL
     Indication: PREMEDICATION
     Dosage: 70 ML, ONCE
     Route: 042
     Dates: start: 20160429, end: 20160429
  61. QUPRON [Concomitant]
     Indication: PROPHYLAXIS
     Dosage: 1 BAG, BID
     Route: 042
     Dates: start: 20160430, end: 20160504
  62. NESP [Concomitant]
     Active Substance: DARBEPOETIN ALFA
     Indication: PROPHYLAXIS
     Dosage: 1 SYRINGE, ONCE, FORMULATION: PREFILLED SYRINGE
     Route: 042
     Dates: start: 20160801, end: 20160801
  63. PHOSTEN [Concomitant]
     Indication: PROPHYLAXIS
     Dosage: 1 AMP (20 ML), QD
     Route: 042
     Dates: start: 20160805, end: 20160808
  64. PETHIDINE HCL JEIL [Concomitant]
     Dosage: 1 AMP, QD
     Route: 042
     Dates: start: 20160425, end: 20160426
  65. ATROVENT [Concomitant]
     Active Substance: IPRATROPIUM BROMIDE
     Dosage: 2 AMP, QD
     Route: 055
     Dates: start: 20160827
  66. GASLON [Concomitant]
     Active Substance: IRSOGLADINE MALEATE
     Indication: ULCER
     Dosage: 1 TABLET (4 MG), QD
     Route: 048
     Dates: start: 20160530, end: 20160609
  67. TABAXIN [Concomitant]
     Indication: PROPHYLAXIS
     Dosage: 1 V, TID
     Route: 042
     Dates: start: 20160725, end: 20160811
  68. TRIDOL (TRAMADOL HYDROCHLORIDE) [Concomitant]
     Indication: PROPHYLAXIS
     Dosage: 1 AMP, ONCE
     Route: 042
     Dates: start: 20160701, end: 20160701
  69. ACTINAMIDE [Concomitant]
     Dosage: 1 MG, ONCE
     Route: 030
     Dates: start: 20160511, end: 20160511
  70. LANSTON [Concomitant]
     Active Substance: LANSOPRAZOLE
     Indication: ULCER
     Dosage: 1 TABLET (15 MG), QD
     Route: 048
     Dates: start: 20160506, end: 20160512
  71. LEGALON [Concomitant]
     Active Substance: MILK THISTLE
     Indication: PROPHYLAXIS
     Dosage: 1 CAPSULE (140 MG), TID
     Route: 048
     Dates: start: 20160421, end: 20160512
  72. SYNATURA [Concomitant]
     Indication: PRODUCTIVE COUGH
     Dosage: 1 PK, TID
     Route: 048
     Dates: start: 20160831
  73. ALIMTA [Concomitant]
     Active Substance: PEMETREXED DISODIUM
     Indication: LUNG NEOPLASM MALIGNANT
     Dosage: 935 MG, ONCE, CYCLE 1
     Route: 042
     Dates: start: 20160428, end: 20160428
  74. CISPLATIN. [Concomitant]
     Active Substance: CISPLATIN
     Indication: LUNG NEOPLASM MALIGNANT
     Dosage: 93.5 MG, ONCE, CYCLE 1
     Route: 042
     Dates: start: 20160429, end: 20160429
  75. DEXAMETHASONE. [Concomitant]
     Active Substance: DEXAMETHASONE
     Dosage: 8 MG, TID
     Route: 048
     Dates: start: 20160727, end: 20160727
  76. TANTUM [Concomitant]
     Active Substance: BENZYDAMINE HYDROCHLORIDE
     Indication: PROPHYLAXIS
     Dosage: 1 BTL, QD, FORMULATION REPORTED AS GARGLE
     Route: 050
     Dates: start: 20160705, end: 201607
  77. NEXIUM [Concomitant]
     Active Substance: ESOMEPRAZOLE MAGNESIUM
     Dosage: 1 TABLET (20 MG), QD
     Route: 048
     Dates: start: 20160612, end: 20160613
  78. FLIXOTIDE [Concomitant]
     Active Substance: FLUTICASONE PROPIONATE
     Indication: COUGH
     Dosage: 4 ML, QD
     Route: 055
     Dates: start: 20160426, end: 20160502
  79. AMBROXOL ILDONG [Concomitant]
     Indication: PRODUCTIVE COUGH
     Dosage: 15 ML, TID
     Route: 058
     Dates: start: 201604, end: 20160428
  80. CALCIUM GLUCONATE. [Concomitant]
     Active Substance: CALCIUM GLUCONATE
     Indication: PROPHYLAXIS
     Dosage: 2 G, QD
     Route: 042
     Dates: start: 20160827, end: 20160831
  81. LASIX [Concomitant]
     Active Substance: FUROSEMIDE
     Indication: PROPHYLAXIS
     Dosage: 1 AMP, ONCE
     Route: 042
     Dates: start: 20160416, end: 20160416
  82. LASIX [Concomitant]
     Active Substance: FUROSEMIDE
     Dosage: 20 MG, QID
     Route: 042
     Dates: start: 20160725, end: 20160731
  83. GRASIN [Concomitant]
     Indication: PROPHYLAXIS
     Dosage: 1 PFS, QD, PRE-FILLED SYRINGE
     Route: 058
     Dates: start: 20160802, end: 20160803
  84. LUTHIONE [Concomitant]
     Indication: PROPHYLAXIS
     Dosage: 2 V, ONCE
     Route: 042
     Dates: start: 20160822, end: 20160822
  85. MORPHINE SULFATE. [Concomitant]
     Active Substance: MORPHINE SULFATE
     Dosage: 1 AMP, QD
     Route: 042
     Dates: start: 20150722, end: 20160722
  86. LYRICA [Concomitant]
     Active Substance: PREGABALIN
     Indication: PROPHYLAXIS
     Dosage: 1 TABLET (150 MG), BID
     Route: 048
     Dates: start: 20160806
  87. VENTOLIN [Concomitant]
     Active Substance: ALBUTEROL SULFATE
     Indication: PROPHYLAXIS
     Dosage: 10 MG, QD
     Route: 055
     Dates: start: 20160725, end: 20160805
  88. ALDACTONE [Concomitant]
     Active Substance: SPIRONOLACTONE
     Indication: PROPHYLAXIS
     Dosage: 0.5 TABLET, BID
     Route: 048
     Dates: start: 20160530
  89. EMEND (FOSAPREPITANT DIMEGLUMINE) [Suspect]
     Active Substance: FOSAPREPITANT DIMEGLUMINE
     Dosage: 150 MG, ONCE
     Route: 042
     Dates: start: 20160703, end: 20160703
  90. DEXA (DEXAMETHASONE SODIUM PHOSPHATE) [Concomitant]
     Indication: PREMEDICATION
     Dosage: 8 MG, ONCE
     Route: 042
     Dates: start: 20160429, end: 20160429
  91. DEXA (DEXAMETHASONE SODIUM PHOSPHATE) [Concomitant]
     Dosage: 8 MG, ONCE
     Route: 042
     Dates: start: 20160611, end: 20160611
  92. DEXA (DEXAMETHASONE SODIUM PHOSPHATE) [Concomitant]
     Dosage: 8 MG, BID
     Route: 042
     Dates: start: 20160821, end: 20160822
  93. DEXA (DEXAMETHASONE SODIUM PHOSPHATE) [Concomitant]
     Indication: PROPHYLAXIS
     Dosage: 4 MG, BID
     Route: 042
     Dates: start: 20160430, end: 20160509
  94. ALOXI [Concomitant]
     Active Substance: PALONOSETRON HYDROCHLORIDE
     Dosage: 0.25 ML, QD
     Route: 042
     Dates: start: 20160703, end: 20160727
  95. BACLOFEN. [Concomitant]
     Active Substance: BACLOFEN
     Indication: PAIN
     Dosage: 1 TABLET (10 MG), TID
     Route: 048
     Dates: start: 20160501, end: 20160504
  96. CODEINE PHOSPHATE [Concomitant]
     Active Substance: CODEINE PHOSPHATE
     Dosage: 1 TABLET (20 MG), TID
     Route: 048
     Dates: start: 20160422, end: 20160506
  97. MUCOMYST [Concomitant]
     Active Substance: ACETYLCYSTEINE
     Dosage: 2 B, QD
     Route: 055
     Dates: start: 20160827
  98. ALBUMIN HUMAN [Concomitant]
     Active Substance: ALBUMIN HUMAN
     Dosage: 1 BTL (100 ML), QD
     Route: 042
     Dates: start: 20160825, end: 20160829
  99. AMBROXOL ILDONG [Concomitant]
     Indication: COUGH
     Dosage: 70 ML, QD
     Route: 058
     Dates: start: 20160827
  100. CLEXANE (ENOXAPARIN SODIUM) [Concomitant]
     Active Substance: ENOXAPARIN SODIUM
     Indication: PROPHYLAXIS
     Dosage: 1 SYR, QD
     Route: 058
     Dates: start: 20160809, end: 20160818
  101. HEPARIN SODIUM. [Concomitant]
     Active Substance: HEPARIN SODIUM
     Dosage: 1 ML, ONCE
     Route: 042
     Dates: start: 20160609, end: 20160609
  102. HEPARIN SODIUM. [Concomitant]
     Active Substance: HEPARIN SODIUM
     Dosage: 1 ML, ONCE
     Route: 042
     Dates: start: 20160819, end: 20160819
  103. PHOSTEN [Concomitant]
     Dosage: 1 AMP (20 ML), BID
     Route: 042
     Dates: start: 20160829, end: 20160829
  104. PHOSTEN [Concomitant]
     Dosage: 1 AMP (20 ML), BID
     Route: 042
     Dates: start: 20160831, end: 20160831
  105. MORPHINE SULFATE. [Concomitant]
     Active Substance: MORPHINE SULFATE
     Indication: PAIN
     Dosage: 1 AMP, ONCE
     Route: 042
     Dates: start: 20160503, end: 20160503
  106. ATROVENT [Concomitant]
     Active Substance: IPRATROPIUM BROMIDE
     Indication: COUGH
     Dosage: 4 AMP, QD
     Route: 055
     Dates: start: 20160426, end: 20160502
  107. ACTINAMIDE [Concomitant]
     Dosage: 1 MG, ONCE
     Route: 030
     Dates: start: 20160603, end: 20160603
  108. ACTINAMIDE [Concomitant]
     Dosage: 1 MG, ONCE
     Route: 030
     Dates: start: 20160620, end: 20160620
  109. TIROPA (TIROPRAMIDE HYDROCHLORIDE) [Concomitant]
     Indication: PROPHYLAXIS
     Dosage: 1 TABLET (100 MG), TID
     Route: 048
     Dates: start: 20160803
  110. WARFARIN SODIUM. [Concomitant]
     Active Substance: WARFARIN SODIUM
     Indication: PROPHYLAXIS
     Dosage: 1 MG, QD
     Route: 048
     Dates: start: 20160506
  111. ALIMTA [Concomitant]
     Active Substance: PEMETREXED DISODIUM
     Dosage: 965 MG, ONCE, CYCLE 4
     Route: 042
     Dates: start: 20160702, end: 20160702
  112. CISPLATIN. [Concomitant]
     Active Substance: CISPLATIN
     Dosage: 96.5 MG, ONCE, CYCLE 4
     Route: 042
     Dates: start: 20160703, end: 20160703
  113. DOCETAXEL. [Concomitant]
     Active Substance: DOCETAXEL
     Dosage: 118.2 MG, ONCE, CYCLE 2
     Route: 042
     Dates: start: 20160822, end: 20160822
  114. DEXA (DEXAMETHASONE SODIUM PHOSPHATE) [Concomitant]
     Dosage: 8 MG, ONCE
     Route: 042
     Dates: start: 20160522, end: 20160522
  115. ALOXI [Concomitant]
     Active Substance: PALONOSETRON HYDROCHLORIDE
     Dosage: 0.25 ML, ONCE
     Route: 042
     Dates: start: 20160522, end: 20160522
  116. PLETAAL [Concomitant]
     Active Substance: CILOSTAZOL
     Indication: PROPHYLAXIS
     Dosage: 1 TABLET (100 MG), BID
     Route: 048
     Dates: start: 20160810, end: 20160820
  117. DICLOFENAC [Concomitant]
     Active Substance: DICLOFENAC
     Indication: PROPHYLAXIS
     Dosage: 1 BTL, QD, ROUTE OF ADMINISTRATION: GARGLE, FORMULATION: SOLUTION
     Route: 050
     Dates: start: 20160705, end: 201607
  118. NEXIUM [Concomitant]
     Active Substance: ESOMEPRAZOLE MAGNESIUM
     Indication: PROPHYLAXIS
     Dosage: 1 TABLET (20 MG), QD
     Route: 048
     Dates: start: 20160520, end: 20160521
  119. MANNITOL. [Concomitant]
     Active Substance: MANNITOL
     Dosage: 70 ML, ONCE
     Route: 042
     Dates: start: 20160611, end: 20160611
  120. MANNITOL. [Concomitant]
     Active Substance: MANNITOL
     Dosage: 70 ML, ONCE
     Route: 042
     Dates: start: 20160703, end: 20160703
  121. LASIX [Concomitant]
     Active Substance: FUROSEMIDE
     Dosage: 0.5 AMP, BID
     Route: 042
     Dates: start: 20160522, end: 20160524
  122. HEPARIN SODIUM. [Concomitant]
     Active Substance: HEPARIN SODIUM
     Dosage: 5 ML, ONCE
     Route: 042
     Dates: start: 20160722, end: 20160722
  123. HEPARIN SODIUM. [Concomitant]
     Active Substance: HEPARIN SODIUM
     Dosage: 5 ML, QD
     Route: 042
     Dates: start: 20160804, end: 20160809
  124. OXYNORM [Concomitant]
     Active Substance: OXYCODONE HYDROCHLORIDE
     Indication: PAIN
     Dosage: 5 AMP, QD
     Route: 042
     Dates: start: 20160722, end: 20160730
  125. TABAXIN [Concomitant]
     Dosage: 1 V, TID
     Route: 042
     Dates: start: 20160426, end: 20160505
  126. ACTINAMIDE [Concomitant]
     Indication: PROPHYLAXIS
     Dosage: 1 AMP, ONCE
     Route: 030
     Dates: start: 20160422, end: 20160422
  127. PMS NYSTATIN [Concomitant]
     Indication: PROPHYLAXIS
     Dosage: 5 ML, TID
     Route: 048
     Dates: start: 20160801, end: 20160901
  128. MUCOSTA [Concomitant]
     Active Substance: REBAMIPIDE
     Indication: ULCER
     Dosage: 1 TABLET (100 MG), QD
     Route: 048
     Dates: start: 20110611, end: 20110621
  129. SOLETON [Concomitant]
     Active Substance: ZALTOPROFEN
     Indication: PROPHYLAXIS
     Dosage: 1 TABLET (80 MG), BID
     Route: 048
     Dates: start: 20160711, end: 20160724

REACTIONS (3)
  - Cytopenia [Recovered/Resolved]
  - Decreased appetite [Unknown]
  - Constipation [Unknown]

NARRATIVE: CASE EVENT DATE: 2016
